FAERS Safety Report 24351262 (Version 1)
Quarter: 2024Q3

REPORT INFORMATION
  Report Type: Spontaneous
  Country: CN (occurrence: CN)
  Receive Date: 20240923
  Receipt Date: 20240923
  Transmission Date: 20241017
  Serious: No
  Sender: ROCHE
  Company Number: CN-ROCHE-3538628

PATIENT
  Age: 56 Year
  Sex: Male

DRUGS (11)
  1. TRASTUZUMAB [Suspect]
     Active Substance: TRASTUZUMAB
     Indication: Gastric cancer
     Route: 042
  2. PACLITAXEL [Suspect]
     Active Substance: PACLITAXEL
     Indication: Gastric cancer
     Dosage: DAY 1
     Route: 042
  3. CISPLATIN [Suspect]
     Active Substance: CISPLATIN
     Indication: Gastric cancer
     Dosage: DAY 1-3
     Route: 042
  4. TISLELIZUMAB [Suspect]
     Active Substance: TISLELIZUMAB
     Indication: Gastric cancer
     Route: 042
  5. OXALIPLATIN [Concomitant]
     Active Substance: OXALIPLATIN
     Dosage: DAY 1
     Route: 042
  6. TS-1 [Concomitant]
     Active Substance: GIMERACIL\OTERACIL POTASSIUM\TEGAFUR
     Dosage: DAY 1-14
  7. CAMRELIZUMAB [Concomitant]
     Active Substance: CAMRELIZUMAB
     Route: 042
  8. CAPECITABINE [Concomitant]
     Active Substance: CAPECITABINE
     Dosage: DAY 1-14 EVERY 3 WEEKS
     Route: 048
  9. SINTILIMAB [Concomitant]
     Active Substance: SINTILIMAB
     Dosage: DAY 0
     Route: 042
  10. HEMATOPORPHYRIN [Concomitant]
     Active Substance: HEMATOPORPHYRIN
     Dosage: 1 ML ADDED INTO 0.9 % SODIUM CHLORIDE SOLUTION (250 ML)
  11. DYCLONINE HYDROCHLORIDE [Concomitant]
     Active Substance: DYCLONINE HYDROCHLORIDE
     Route: 048

REACTIONS (5)
  - Myelosuppression [Recovering/Resolving]
  - Mouth ulceration [Recovering/Resolving]
  - Gingival pain [Recovering/Resolving]
  - Nausea [Recovering/Resolving]
  - Regurgitation [Recovering/Resolving]
